FAERS Safety Report 10077403 (Version 1)
Quarter: 2014Q2

REPORT INFORMATION
  Report Type: Spontaneous
  Country: US (occurrence: US)
  Receive Date: 20140414
  Receipt Date: 20140414
  Transmission Date: 20141212
  Serious: No
  Sender: FDA-Public Use
  Company Number: US-BANPHARM-20131481

PATIENT
  Age: 90 Year
  Sex: Female
  Weight: 65.76 kg

DRUGS (4)
  1. NAPROXEN SODIUM 220 MG [Suspect]
     Indication: BACK PAIN
     Dosage: 880 MG, QD,
     Route: 048
     Dates: start: 20130629
  2. LIPITOR [Concomitant]
  3. VITAMINS [Concomitant]
  4. METFORMIN [Concomitant]

REACTIONS (1)
  - Drug ineffective [Unknown]
